FAERS Safety Report 23099277 (Version 6)
Quarter: 2024Q1

REPORT INFORMATION
  Report Type: Spontaneous
  Country: US (occurrence: US)
  Receive Date: 20231024
  Receipt Date: 20240304
  Transmission Date: 20240410
  Serious: Yes (Other)
  Sender: FDA-Public Use
  Company Number: US-Blueprint Medicines Corporation-SP-US-2023-001682

PATIENT
  Sex: Female

DRUGS (4)
  1. AYVAKIT [Suspect]
     Active Substance: AVAPRITINIB
     Indication: Indolent systemic mastocytosis
     Route: 048
     Dates: start: 20230805
  2. AYVAKIT [Suspect]
     Active Substance: AVAPRITINIB
     Dosage: 1/4 TAB OF 25 MG
     Route: 065
  3. AYVAKIT [Suspect]
     Active Substance: AVAPRITINIB
     Route: 065
  4. AYVAKIT [Suspect]
     Active Substance: AVAPRITINIB
     Dosage: 2-3 MILLIGRAMS TO 6 MILLIGRAMS OF THE TABLET AND JUST SPRINKLE QTR OR THE POWDER
     Route: 065

REACTIONS (5)
  - Mast cell activation syndrome [Recovered/Resolved]
  - Malaise [Recovered/Resolved]
  - Decreased activity [Recovered/Resolved]
  - Asthenia [Recovered/Resolved]
  - Off label use [Unknown]
